FAERS Safety Report 4337866-X (Version None)
Quarter: 2004Q2

REPORT INFORMATION
  Report Type: 
  Country: None (occurrence: None)
  Receive Date: 20040408
  Receipt Date: 20040329
  Transmission Date: 20050107
  Serious: Yes (Hospitalization, Other)
  Sender: FDA-Public Use
  Company Number: CA-JNJFOC-20040305496

PATIENT
  Age: 57 Year
  Sex: Male

DRUGS (3)
  1. REMICADE [Suspect]
     Indication: CROHN'S DISEASE
     Dosage: INTRAVENOUS
     Route: 042
     Dates: start: 20021217
  2. REMICADE [Suspect]
     Indication: CROHN'S DISEASE
     Dosage: INTRAVENOUS
     Route: 042
     Dates: start: 20030106
  3. REMICADE [Suspect]
     Indication: CROHN'S DISEASE
     Dosage: INTRAVENOUS
     Route: 042
     Dates: start: 20030301

REACTIONS (17)
  - ASTHENIA [None]
  - CANDIDIASIS [None]
  - CHEST PAIN [None]
  - CLOSTRIDIUM COLITIS [None]
  - COLONIC FISTULA [None]
  - COLONIC HAEMORRHAGE [None]
  - COLONIC STENOSIS [None]
  - CROHN'S DISEASE [None]
  - DEEP VEIN THROMBOSIS [None]
  - DISEASE PROGRESSION [None]
  - IMPAIRED HEALING [None]
  - MALNUTRITION [None]
  - MUSCULAR DYSTROPHY [None]
  - PULMONARY EMBOLISM [None]
  - SEPSIS [None]
  - SYNCOPE [None]
  - TROPONIN I INCREASED [None]
